FAERS Safety Report 17460312 (Version 1)
Quarter: 2020Q1

REPORT INFORMATION
  Report Type: Spontaneous
  Country: US (occurrence: US)
  Receive Date: 20200213
  Receipt Date: 20200213
  Transmission Date: 20200409
  Serious: No
  Sender: FDA-Public Use
  Company Number: None

PATIENT
  Sex: Female

DRUGS (1)
  1. MAVYRET [Suspect]
     Active Substance: GLECAPREVIR\PIBRENTASVIR
     Indication: HEPATITIS VIRAL
     Dosage: ?          OTHER DOSE:100MG?40MG;?
     Route: 048
     Dates: start: 20200128

REACTIONS (2)
  - Influenza [None]
  - Pain [None]
